FAERS Safety Report 6978410-8 (Version None)
Quarter: 2010Q3

REPORT INFORMATION
  Report Type: 
  Country: None (occurrence: None)
  Receive Date: 20100913
  Receipt Date: 20100830
  Transmission Date: 20110219
  Serious: Yes (Disabling, Other)
  Sender: FDA-Public Use
  Company Number: PHHY2010US53493

PATIENT
  Sex: Female
  Weight: 67.12 kg

DRUGS (18)
  1. ZOMETA [Suspect]
     Indication: MULTIPLE MYELOMA
     Dosage: 4 MG, QMO
     Dates: start: 20100510, end: 20100729
  2. AMBIEN [Concomitant]
     Dosage: 10 MG, UNK
  3. AUGMENTIN '125' [Concomitant]
     Dosage: 875 MG, UNK
  4. COLCHICINE [Concomitant]
     Dosage: 0.6 MG, UNK
  5. ESTRACE [Concomitant]
     Dosage: 0.01 %, UNK
  6. FISH OIL [Concomitant]
     Dosage: 1000 MG, UNK
  7. LABETALOL HCL [Concomitant]
     Dosage: 100 MG, UNK
  8. MULTI-VITAMINS [Concomitant]
     Route: 048
  9. NEUPOGEN [Concomitant]
     Dosage: 480 MCG/0.8ML
  10. NORCO [Concomitant]
     Dosage: 10-325 MG TAB
  11. OMEPRAZOLE [Concomitant]
     Dosage: 20 MG, UNK
  12. OXYCONTIN [Concomitant]
     Dosage: 60 MG, UNK
  13. VALTREX [Concomitant]
     Dosage: 1 MG, UNK
  14. ZOFRAN [Concomitant]
     Dosage: 8 MG, UNK
  15. ZOLOFT [Concomitant]
     Dosage: 100 MG, UNK
  16. VELCADE [Concomitant]
     Dosage: ABOUT 10 CYCLES
     Dates: start: 20091201
  17. REVLIMID [Concomitant]
     Dosage: ABOUT 10 CYCLES
     Dates: start: 20070101
  18. DECADRON [Suspect]
     Dosage: ABOUT 10 CYCLES
     Dates: start: 20070101

REACTIONS (19)
  - ALANINE AMINOTRANSFERASE INCREASED [None]
  - ASPARTATE AMINOTRANSFERASE INCREASED [None]
  - BACK PAIN [None]
  - BLOOD ALKALINE PHOSPHATASE INCREASED [None]
  - BLOOD MAGNESIUM INCREASED [None]
  - BLOOD PHOSPHORUS INCREASED [None]
  - BLOOD STEM CELL HARVEST [None]
  - BONE DISORDER [None]
  - BONE LESION [None]
  - EXOSTOSIS [None]
  - FATIGUE [None]
  - GINGIVAL PAIN [None]
  - HYPOAESTHESIA [None]
  - KYPHOSCOLIOSIS [None]
  - NAUSEA [None]
  - OPEN WOUND [None]
  - ORAL DISCOMFORT [None]
  - TONGUE INJURY [None]
  - WHITE BLOOD CELL COUNT INCREASED [None]
